FAERS Safety Report 6176979-7 (Version None)
Quarter: 2009Q2

REPORT INFORMATION
  Report Type: 
  Country: None (occurrence: None)
  Receive Date: 20090501
  Receipt Date: 20090203
  Transmission Date: 20091009
  Serious: Yes (Other)
  Sender: FDA-Public Use
  Company Number: US-ALEXION-A200900074

PATIENT
  Sex: Male

DRUGS (14)
  1. SOLIRIS [Suspect]
     Indication: PAROXYSMAL NOCTURNAL HAEMOGLOBINURIA
     Dosage: 600 MG, QWK X4
     Route: 042
     Dates: start: 20070420
  2. SOLIRIS [Suspect]
     Dosage: 900 MG, Q2WK
     Route: 042
  3. OMEPRAZOLE [Concomitant]
     Dosage: UNK
     Route: 048
  4. ASPIRIN [Concomitant]
     Indication: CARDIOVASCULAR EVENT PROPHYLAXIS
     Dosage: UNK
     Route: 048
  5. MULTIVITAMIN                       /00831701/ [Concomitant]
     Dosage: UNK
     Route: 048
  6. VITAMIN B-12 [Concomitant]
     Dosage: UNK
     Route: 048
  7. IRON + VITAMIN C                   /00271701/ [Concomitant]
     Dosage: UNK
     Route: 048
  8. LOTREL [Concomitant]
     Indication: BLOOD PRESSURE
     Dosage: UNK
     Route: 048
     Dates: end: 20080101
  9. CIALIS [Concomitant]
     Indication: ERECTILE DYSFUNCTION
     Dosage: UNK
     Route: 048
  10. HYDROCHLOROTHIAZIDE [Concomitant]
     Indication: BLOOD PRESSURE
     Dosage: UNK
     Route: 048
  11. CLARITIN                           /00917501/ [Concomitant]
     Indication: HYPERSENSITIVITY
     Dosage: UNK
     Route: 048
  12. POTASSIUM CHLORIDE [Concomitant]
     Dosage: UNK
     Route: 048
  13. NORVASC [Concomitant]
     Indication: BLOOD PRESSURE
     Dosage: 5 MG, QD
     Route: 048
  14. DOXYCYCLINE [Concomitant]
     Dosage: UNK
     Route: 048
     Dates: end: 20080101

REACTIONS (1)
  - PLANTAR FASCIITIS [None]
